FAERS Safety Report 8002550-8 (Version None)
Quarter: 2011Q4

REPORT INFORMATION
  Report Type: 
  Country: None (occurrence: None)
  Receive Date: 20111222
  Receipt Date: 20111216
  Transmission Date: 20120403
  Serious: No
  Sender: FDA-Public Use
  Company Number: US-B.I. PHARMACEUTICALS,INC./RIDGEFIELD-2011-BP-28335BP

PATIENT
  Sex: Female

DRUGS (7)
  1. VENTOLIN [Concomitant]
     Indication: ASTHMA
     Route: 055
  2. FLOVENT [Concomitant]
     Indication: ASTHMA
     Route: 055
  3. PRADAXA [Suspect]
     Indication: ATRIAL FIBRILLATION
     Dosage: 300 MG
     Route: 048
     Dates: start: 20110323
  4. NASONEX [Concomitant]
     Indication: SEASONAL ALLERGY
     Route: 045
  5. ZANTAC [Concomitant]
     Indication: DYSPEPSIA
     Dosage: 300 MG
     Route: 048
  6. DILTIAZEM HCL [Concomitant]
     Indication: ATRIAL FIBRILLATION
     Dosage: 240 MG
     Route: 048
  7. ATACAND HCT [Concomitant]
     Indication: HYPERTENSION
     Route: 048

REACTIONS (1)
  - COUGH [None]
